FAERS Safety Report 8554620 (Version 2)
Quarter: 2013Q2

REPORT INFORMATION
  Report Type: Spontaneous
  Country: US (occurrence: None)
  Receive Date: 20120327
  Receipt Date: 20120709
  Transmission Date: 20140414
  Serious: Yes (Other)
  Sender: FDA-Public Use
  Company Number: PHHY2011US30370

PATIENT
  Age: 73 Year
  Sex: Female

DRUGS (1)
  1. GLEEVEC [Suspect]
     Indication: CHRONIC MYELOID LEUKAEMIA
     Dosage: 400 MG, DAILY, ORAL
     Route: 048
     Dates: start: 20110314

REACTIONS (7)
  - ANAEMIA [None]
  - FATIGUE [None]
  - ALOPECIA [None]
  - FLUID RETENTION [None]
  - DECREASED APPETITE [None]
  - Asthenia [None]
  - Hair texture abnormal [None]
